FAERS Safety Report 4945663-7 (Version None)
Quarter: 2006Q1

REPORT INFORMATION
  Report Type: 
  Country: None (occurrence: None)
  Receive Date: 20060316
  Receipt Date: 20060222
  Transmission Date: 20060701
  Serious: Yes (Other)
  Sender: FDA-Public Use
  Company Number: PHBS2006JP03049

PATIENT
  Age: 1 Year
  Sex: Male

DRUGS (5)
  1. CYCLOSPORINE [Suspect]
     Indication: CORD BLOOD TRANSPLANT THERAPY
     Route: 065
  2. METHOTREXATE [Suspect]
     Indication: CORD BLOOD TRANSPLANT THERAPY
  3. BUSULFAN [Concomitant]
  4. L-PAM [Concomitant]
  5. CYTARABINE [Concomitant]

REACTIONS (13)
  - BONE MARROW DISORDER [None]
  - CARDIAC FAILURE [None]
  - CORD BLOOD TRANSPLANT THERAPY [None]
  - DISSEMINATED INTRAVASCULAR COAGULATION [None]
  - ENTEROCOCCAL SEPSIS [None]
  - GRAFT COMPLICATION [None]
  - GRAFT VERSUS HOST DISEASE [None]
  - MUCOUS MEMBRANE DISORDER [None]
  - PULMONARY HAEMORRHAGE [None]
  - PUTAMEN HAEMORRHAGE [None]
  - RENAL DISORDER [None]
  - STAPHYLOCOCCAL SEPSIS [None]
  - TRANSPLANT REJECTION [None]
